FAERS Safety Report 5196539-4 (Version None)
Quarter: 2006Q4

REPORT INFORMATION
  Report Type: 
  Country: None (occurrence: None)
  Receive Date: 20061227
  Receipt Date: 20061218
  Transmission Date: 20070319
  Serious: Yes (Hospitalization)
  Sender: FDA-Public Use
  Company Number: L06-AUS-05326-01

PATIENT
  Age: 23 Year
  Sex: Female

DRUGS (3)
  1. CARBAMAZEPINE [Suspect]
     Dosage: 400 MG QD
  2. HALOPERIDOL [Suspect]
     Dosage: 10 MG QD
  3. CHLORPROMAZINE [Suspect]
     Dosage: 600 MG QD

REACTIONS (4)
  - DRUG HYPERSENSITIVITY [None]
  - EXTRAPYRAMIDAL DISORDER [None]
  - MANIA [None]
  - WRONG DRUG ADMINISTERED [None]
